FAERS Safety Report 4847335-6 (Version None)
Quarter: 2005Q4

REPORT INFORMATION
  Report Type: 
  Country: None (occurrence: None)
  Receive Date: 20051207
  Receipt Date: 20051116
  Transmission Date: 20060501
  Serious: Yes (Death, Hospitalization)
  Sender: FDA-Public Use
  Company Number: CA-SANOFI-SYNTHELABO-F01200502443

PATIENT
  Sex: Male

DRUGS (5)
  1. OXALIPLATIN [Suspect]
     Indication: COLORECTAL CANCER METASTATIC
     Dosage: 128 MG 1 X PER 2 WEEK
     Route: 042
     Dates: start: 20051107, end: 20051107
  2. FLUOROURACIL [Suspect]
     Indication: COLORECTAL CANCER METASTATIC
     Dosage: 784 MG 2 X PER WEEK
     Route: 042
  3. LEUCOVORIN CALCIUM [Suspect]
     Indication: COLORECTAL CANCER METASTATIC
     Dosage: 392 MG 1 X PER 2 WEEK
     Route: 042
  4. BEVACIZUMAB OR PLACEBO [Suspect]
     Indication: COLORECTAL CANCER METASTATIC
     Dosage: 1 X PER 2 WEEK
     Route: 042
     Dates: start: 20051107, end: 20051107
  5. NEUPOGEN [Concomitant]
     Dates: start: 20051021, end: 20051029

REACTIONS (4)
  - CATHETER SEPSIS [None]
  - CHILLS [None]
  - HAEMATURIA [None]
  - HAEMOLYTIC ANAEMIA [None]
